FAERS Safety Report 8836229 (Version 1)
Quarter: 2012Q4

REPORT INFORMATION
  Report Type: Report from Study
  Country: DE (occurrence: DE)
  Receive Date: 20121011
  Receipt Date: 20121011
  Transmission Date: 20130627
  Serious: Yes (Hospitalization)
  Sender: FDA-Public Use
  Company Number: DE-TEVA-362660GER

PATIENT
  Age: 37 Year
  Sex: Male

DRUGS (10)
  1. BLEOMYCIN [Suspect]
     Indication: HODGKIN^S DISEASE
     Route: 065
     Dates: start: 20110525
  2. ETOPOSIDE [Suspect]
     Indication: HODGKIN^S DISEASE
     Dosage: 200 mg/m2 Daily;
     Route: 065
     Dates: start: 20110518, end: 20110520
  3. PREDNISONE [Suspect]
     Indication: HODGKIN^S DISEASE
     Dosage: 40 Milligram Daily;
     Route: 065
     Dates: start: 20110518, end: 20110525
  4. ADRIAMYCIN [Suspect]
     Indication: HODGKIN^S DISEASE
     Route: 065
     Dates: start: 20110518, end: 20110518
  5. PROCARBAZINE [Suspect]
     Indication: HODGKIN^S DISEASE
     Route: 065
  6. CYCLOPHOSPHAMID [Suspect]
     Indication: HODGKIN^S DISEASE
     Route: 065
     Dates: start: 20110518, end: 20110518
  7. RITUXIMAB [Suspect]
     Indication: HODGKIN^S DISEASE
     Route: 042
     Dates: start: 20110518
  8. G-CSF [Concomitant]
     Dates: start: 20110523
  9. COTRIM [Concomitant]
     Dates: start: 20110221
  10. TAVANIC [Concomitant]

REACTIONS (2)
  - Pancytopenia [Recovered/Resolved]
  - Pyrexia [Recovered/Resolved]
